FAERS Safety Report 16108844 (Version 1)
Quarter: 2019Q1

REPORT INFORMATION
  Report Type: Spontaneous
  Country: US (occurrence: US)
  Receive Date: 20190323
  Receipt Date: 20190323
  Transmission Date: 20190418
  Serious: No
  Sender: FDA-Public Use
  Company Number: US-TEVA-2019-US-1019376

PATIENT
  Sex: Female
  Weight: 95.25 kg

DRUGS (1)
  1. OXYBUTYNIN. [Suspect]
     Active Substance: OXYBUTYNIN CHLORIDE
     Dosage: 90 COUNT
     Route: 048
     Dates: start: 201702, end: 201711

REACTIONS (3)
  - Dry mouth [Unknown]
  - Product dose omission [Unknown]
  - Drug ineffective [Unknown]
